FAERS Safety Report 9795784 (Version 2)
Quarter: 2014Q1

REPORT INFORMATION
  Report Type: Spontaneous
  Country: US (occurrence: US)
  Receive Date: 20140103
  Receipt Date: 20140212
  Transmission Date: 20141002
  Serious: No
  Sender: FDA-Public Use
  Company Number: US-009507513-1312USA012058

PATIENT
  Age: 46 Year
  Sex: Male
  Weight: 63.39 kg

DRUGS (3)
  1. PROVENTIL [Suspect]
     Indication: CHRONIC OBSTRUCTIVE PULMONARY DISEASE
     Dosage: ONE TAKEN EVERY 2 HOURS OR SO FOR A TOTAL OF APPROXIMATELY 15 TIMES PER DAY
     Route: 055
     Dates: start: 200312
  2. PROVENTIL [Suspect]
     Indication: ASTHMA
  3. PREDNISONE [Concomitant]
     Dosage: UNK

REACTIONS (3)
  - Asthma [Recovered/Resolved]
  - Dyspnoea [Recovered/Resolved]
  - Product quality issue [Unknown]
